FAERS Safety Report 19088207 (Version 2)
Quarter: 2021Q2

REPORT INFORMATION
  Report Type: Spontaneous
  Country: US (occurrence: US)
  Receive Date: 20210402
  Receipt Date: 20210505
  Transmission Date: 20210717
  Serious: Yes (Hospitalization, Other)
  Sender: FDA-Public Use
  Company Number: US-PFIZER INC-2021313948

PATIENT
  Age: 64 Year
  Sex: Female
  Weight: 97.05 kg

DRUGS (1)
  1. IBRANCE [Suspect]
     Active Substance: PALBOCICLIB
     Indication: BREAST CANCER FEMALE
     Dosage: 75 MG, CYCLIC (DAILY FOR 21 DAYS)
     Route: 048
     Dates: start: 201910

REACTIONS (3)
  - Small intestinal obstruction [Unknown]
  - Inappropriate schedule of product administration [Unknown]
  - Functional gastrointestinal disorder [Recovered/Resolved]
